FAERS Safety Report 6150082-4 (Version None)
Quarter: 2009Q2

REPORT INFORMATION
  Report Type: 
  Country: None (occurrence: None)
  Receive Date: 20090407
  Receipt Date: 20090407
  Transmission Date: 20091009
  Serious: Yes (Hospitalization)
  Sender: FDA-Public Use
  Company Number: None

PATIENT
  Sex: Male
  Weight: 79.7 kg

DRUGS (5)
  1. RITUXIMAB (MOAB C2B8 ANTI CD20, CHIMERIC) [Suspect]
     Dosage: 4566 MG
  2. DEXAMETHASONE [Suspect]
     Dosage: 154 MG
  3. LEUCOVORIN CALCIUM [Suspect]
     Dosage: 300 MG
  4. METHOTREXATE [Suspect]
     Dosage: 7105 MG
  5. VINCRISTINE SULFATE [Suspect]
     Dosage: 2.8 MG

REACTIONS (12)
  - APHASIA [None]
  - BLOOD GLUCOSE INCREASED [None]
  - BLOOD LACTATE DEHYDROGENASE INCREASED [None]
  - BLOOD PHOSPHORUS DECREASED [None]
  - BLOOD SODIUM DECREASED [None]
  - EMPHYSEMA [None]
  - INTESTINAL PERFORATION [None]
  - MEMORY IMPAIRMENT [None]
  - PNEUMOMEDIASTINUM [None]
  - PNEUMOPERITONEUM [None]
  - PNEUMOTHORAX [None]
  - SOFT TISSUE DISORDER [None]
